FAERS Safety Report 12941340 (Version 1)
Quarter: 2016Q4

REPORT INFORMATION
  Report Type: Spontaneous
  Country: US (occurrence: US)
  Receive Date: 20161114
  Receipt Date: 20161114
  Transmission Date: 20170207
  Serious: Yes (Other)
  Sender: FDA-Public Use
  Company Number: US-BELCHER PHARMACEUTICALS, LLC-2016VTS00165

PATIENT
  Age: 60 Year
  Sex: Female
  Weight: 86.17 kg

DRUGS (20)
  1. TORADOL [Concomitant]
     Active Substance: KETOROLAC TROMETHAMINE
     Dosage: 10 MG, 1X/DAY
     Route: 048
  2. VALIUM [Concomitant]
     Active Substance: DIAZEPAM
     Route: 048
  3. VOLTAREN [Concomitant]
     Active Substance: DICLOFENAC SODIUM
     Dosage: 2 G, 4X/DAY
  4. LIDODERM [Concomitant]
     Active Substance: LIDOCAINE
     Dosage: UNK, 12X/DAY
     Route: 061
  5. RESTASIS [Concomitant]
     Active Substance: CYCLOSPORINE
     Dosage: UNK UNK, 1X/DAY
     Route: 047
  6. CLOPIDOGREL [Concomitant]
     Active Substance: CLOPIDOGREL BISULFATE
  7. FLUTICASONE FUROATE [Concomitant]
     Active Substance: FLUTICASONE FUROATE
  8. MYRBETRIQ [Concomitant]
     Active Substance: MIRABEGRON
     Dosage: UNK, 1X/DAY
  9. HYDROCORTISONE 2.5% RECTAL CREAM [Concomitant]
     Dosage: 2.5 %, 2X/DAY
     Route: 054
  10. HYOSCYAMINE SULFATE. [Suspect]
     Active Substance: HYOSCYAMINE SULFATE
     Indication: DIARRHOEA
     Dosage: 0.125 MG, 3X/DAY
     Route: 048
     Dates: start: 201604, end: 20160929
  11. BYSTOLIC [Concomitant]
     Active Substance: NEBIVOLOL HYDROCHLORIDE
     Dosage: 10 MG, 2X/DAY
  12. NEXIUM [Concomitant]
     Active Substance: ESOMEPRAZOLE MAGNESIUM
     Dosage: 40 MG, 1X/DAY
  13. NITRO SPRAY [Concomitant]
     Dosage: 0.4 UNK, AS NEEDED
  14. HYOSCYAMINE SULFATE. [Suspect]
     Active Substance: HYOSCYAMINE SULFATE
     Indication: MUSCLE SPASMS
  15. ANTIVERT [Concomitant]
     Active Substance: MECLIZINE HYDROCHLORIDE
     Dosage: 25 MG, 3X/DAY
     Route: 048
  16. PROAIR HFA [Concomitant]
     Active Substance: ALBUTEROL SULFATE
     Dosage: 2 DOSAGE UNITS, UP TO 6X/DAY
  17. CARDIZEM [Concomitant]
     Active Substance: DILTIAZEM HYDROCHLORIDE
     Dosage: 120 MG, 1X/DAY
     Route: 048
  18. CLONIDINE PATCH [Concomitant]
     Active Substance: CLONIDINE
     Dosage: UNK
     Route: 061
  19. HYDROCHLOROTHIAZIDE. [Concomitant]
     Active Substance: HYDROCHLOROTHIAZIDE
     Dosage: 25 MG, 1X/DAY
  20. LORATADINE. [Concomitant]
     Active Substance: LORATADINE
     Dosage: 10 MG, 1X/DAY

REACTIONS (24)
  - Speech disorder [Recovered/Resolved]
  - Activities of daily living impaired [Recovering/Resolving]
  - Nausea [Unknown]
  - Diarrhoea [Unknown]
  - Fall [Recovered/Resolved]
  - Balance disorder [Recovering/Resolving]
  - Dysstasia [Unknown]
  - Chest pain [Unknown]
  - Chest discomfort [Unknown]
  - Transient ischaemic attack [Recovered/Resolved]
  - Vision blurred [Recovering/Resolving]
  - Confusional state [Recovered/Resolved]
  - Pyrexia [Unknown]
  - Hypoaesthesia [Unknown]
  - Blood pressure increased [Recovering/Resolving]
  - Dysarthria [Recovered/Resolved]
  - Abdominal pain [Recovered/Resolved]
  - Chills [Unknown]
  - Heart rate increased [Recovering/Resolving]
  - Fatigue [Unknown]
  - Asthenia [Unknown]
  - Haematochezia [Unknown]
  - Dizziness [Recovering/Resolving]
  - Appetite disorder [Unknown]

NARRATIVE: CASE EVENT DATE: 2016
